FAERS Safety Report 24190414 (Version 2)
Quarter: 2024Q3

REPORT INFORMATION
  Report Type: Spontaneous
  Country: ID (occurrence: ID)
  Receive Date: 20240808
  Receipt Date: 20240814
  Transmission Date: 20241016
  Serious: Yes (Life-Threatening, Other)
  Sender: CSL BEHRING
  Company Number: ID-BEH-2024176618

PATIENT

DRUGS (1)
  1. PRIVIGEN [Suspect]
     Active Substance: HUMAN IMMUNOGLOBULIN G
     Indication: Guillain-Barre syndrome
     Dosage: 30 G, (6 VIALS OF 50 ML).
     Route: 065

REACTIONS (2)
  - Blood pressure increased [Unknown]
  - Dyspnoea [Unknown]
